FAERS Safety Report 18652391 (Version 4)
Quarter: 2022Q1

REPORT INFORMATION
  Report Type: Spontaneous
  Country: ES (occurrence: ES)
  Receive Date: 20201223
  Receipt Date: 20220311
  Transmission Date: 20220423
  Serious: Yes (Other)
  Sender: FDA-Public Use
  Company Number: ES-MLMSERVICE-20201210-2620795-1

PATIENT
  Age: 68 Year
  Sex: Male
  Weight: 43 kg

DRUGS (9)
  1. OXALIPLATIN [Suspect]
     Active Substance: OXALIPLATIN
     Indication: Metastases to liver
     Dosage: 85 MILLIGRAM/SQ. METER, CYCLICAL
     Route: 042
  2. OXALIPLATIN [Suspect]
     Active Substance: OXALIPLATIN
     Indication: Rectosigmoid cancer stage IV
  3. OXALIPLATIN [Suspect]
     Active Substance: OXALIPLATIN
     Indication: Adenocarcinoma of colon
  4. CETUXIMAB [Suspect]
     Active Substance: CETUXIMAB
     Indication: Metastases to liver
     Dosage: 400 MILLIGRAM/SQ. METER, CYCLICAL
     Route: 042
  5. CETUXIMAB [Suspect]
     Active Substance: CETUXIMAB
     Indication: Adenocarcinoma of colon
     Dosage: 250 MILLIGRAM/SQ. METER
     Route: 065
  6. CETUXIMAB [Suspect]
     Active Substance: CETUXIMAB
     Indication: Rectosigmoid cancer stage IV
  7. FLUOROURACIL [Suspect]
     Active Substance: FLUOROURACIL
     Indication: Metastases to liver
     Dosage: 1200 MILLIGRAM/SQ. METER, CYCLICAL
     Route: 042
  8. FLUOROURACIL [Suspect]
     Active Substance: FLUOROURACIL
     Indication: Rectosigmoid cancer stage IV
     Dosage: 400 MILLIGRAM/SQ. METER, CYCLICAL
     Route: 065
  9. FLUOROURACIL [Suspect]
     Active Substance: FLUOROURACIL
     Indication: Adenocarcinoma of colon

REACTIONS (4)
  - Enteritis [Not Recovered/Not Resolved]
  - Gastrointestinal toxicity [Not Recovered/Not Resolved]
  - Oesophageal ulcer [Not Recovered/Not Resolved]
  - Necrotising oesophagitis [Not Recovered/Not Resolved]
